FAERS Safety Report 16525108 (Version 1)
Quarter: 2019Q3

REPORT INFORMATION
  Report Type: Other
  Country: HR (occurrence: HR)
  Receive Date: 20190703
  Receipt Date: 20190703
  Transmission Date: 20191004
  Serious: Yes (Other)
  Sender: FDA-Public Use
  Company Number: HR-ADHERA THERAPEUTICS, INC.-2019ADHERA000580

PATIENT

DRUGS (4)
  1. FOLACIN                            /00024201/ [Concomitant]
     Active Substance: FOLIC ACID
     Indication: IRON DEFICIENCY ANAEMIA
     Dosage: 5 MG, QD
     Dates: start: 20181126
  2. DIUVER [Concomitant]
     Active Substance: TORSEMIDE
     Indication: CONGESTIVE CARDIOMYOPATHY
     Dosage: 5 MG, QD
     Dates: start: 20150630
  3. NORPREXANIL NOS [Suspect]
     Active Substance: AMLODIPINE BESYLATE\PERINDOPRIL ARGININE
     Indication: ESSENTIAL HYPERTENSION
     Dosage: 1 DF, QD
     Route: 048
     Dates: start: 20141210, end: 20190118
  4. MISAR                              /00595201/ [Concomitant]
     Active Substance: ALPRAZOLAM
     Indication: MIXED ANXIETY AND DEPRESSIVE DISORDER
     Dosage: 0.25 MG, QD
     Dates: start: 20150601

REACTIONS (10)
  - Blood cholesterol increased [Recovered/Resolved]
  - Bacterial test positive [Recovered/Resolved]
  - Restless legs syndrome [Recovered/Resolved]
  - Blood creatinine increased [Recovered/Resolved]
  - Blood triglycerides increased [Recovered/Resolved]
  - Arthralgia [Recovered/Resolved]
  - Oedema peripheral [Recovered/Resolved]
  - Blood urea increased [Recovered/Resolved]
  - Medication error [Unknown]
  - Blood uric acid increased [Recovered/Resolved]

NARRATIVE: CASE EVENT DATE: 201901
